FAERS Safety Report 8067933-9 (Version None)
Quarter: 2012Q1

REPORT INFORMATION
  Report Type: 
  Country: None (occurrence: None)
  Receive Date: 20120124
  Receipt Date: 20110914
  Transmission Date: 20120608
  Serious: No
  Sender: FDA-Public Use
  Company Number: US-AMGEN-USASP2011038793

PATIENT
  Age: 70 Year
  Sex: Female
  Weight: 78.005 kg

DRUGS (13)
  1. VITAMIN B COMPLEX CAP [Concomitant]
     Dosage: UNK
  2. ADVAIR DISKUS 100/50 [Concomitant]
     Dosage: UNK
  3. DITROPAN XL [Concomitant]
     Dosage: UNK
  4. LOVAZA [Concomitant]
     Dosage: UNK
  5. MULTI-VITAMIN [Concomitant]
     Dosage: UNK
  6. PROLIA [Suspect]
     Indication: OSTEOPOROSIS POSTMENOPAUSAL
     Dosage: 60 MG, Q6MO
     Route: 058
     Dates: start: 20110101, end: 20110801
  7. SYNTHROID [Concomitant]
     Dosage: UNK
  8. ZOCOR [Concomitant]
     Dosage: UNK
  9. GLUCOSAMINE + CHONDROITIN WITH MSM [Concomitant]
     Dosage: UNK
  10. MICRONOR [Concomitant]
     Dosage: UNK
  11. ASPIRIN [Concomitant]
     Dosage: UNK
  12. CITRICAL D [Concomitant]
     Dosage: UNK
  13. CELEBREX [Concomitant]

REACTIONS (5)
  - BACK PAIN [None]
  - MYALGIA [None]
  - NECK PAIN [None]
  - ARTHROPATHY [None]
  - PAIN IN EXTREMITY [None]
